FAERS Safety Report 14046331 (Version 1)
Quarter: 2017Q4

REPORT INFORMATION
  Report Type: Spontaneous
  Country: GB (occurrence: GB)
  Receive Date: 20171005
  Receipt Date: 20171005
  Transmission Date: 20180321
  Serious: Yes (Hospitalization)
  Sender: FDA-Public Use
  Company Number: GB-AUROBINDO-AUR-APL-2017-41434

PATIENT
  Age: 76 Year
  Sex: Male

DRUGS (1)
  1. SILDENAFIL FILM-COATED TABLET [Suspect]
     Active Substance: SILDENAFIL
     Indication: PRODUCT USED FOR UNKNOWN INDICATION
     Dosage: 100 MG, 3X/DAY
     Route: 048

REACTIONS (1)
  - Urinary tract disorder [Unknown]
